FAERS Safety Report 6148456-0 (Version None)
Quarter: 2009Q2

REPORT INFORMATION
  Report Type: 
  Country: None (occurrence: None)
  Receive Date: 20090406
  Receipt Date: 20090406
  Transmission Date: 20091009
  Serious: Yes (Life-Threatening)
  Sender: FDA-Public Use
  Company Number: None

PATIENT
  Age: 55 Year
  Sex: Female
  Weight: 53.0709 kg

DRUGS (1)
  1. SUBOXONE [Suspect]
     Indication: PAIN
     Dosage: 1 OR 2 TABLETS 4 TIMES A DAY PO
     Route: 048
     Dates: start: 20081008, end: 20081012

REACTIONS (4)
  - ANOREXIA [None]
  - DYSARTHRIA [None]
  - FALL [None]
  - GAIT DISTURBANCE [None]
